FAERS Safety Report 6223745-X (Version None)
Quarter: 2009Q2

REPORT INFORMATION
  Report Type: 
  Country: None (occurrence: None)
  Receive Date: 20090611
  Receipt Date: 20090310
  Transmission Date: 20091009
  Serious: No
  Sender: FDA-Public Use
  Company Number: US-ABBOTT-09P-163-0499631-00

PATIENT
  Sex: Female
  Weight: 81.72 kg

DRUGS (10)
  1. HUMIRA [Suspect]
     Indication: PSORIATIC ARTHROPATHY
     Route: 058
     Dates: end: 20080601
  2. HUMIRA [Suspect]
     Indication: PSORIASIS
     Route: 058
     Dates: start: 20080601
  3. HUMIRA [Suspect]
     Indication: OSTEOARTHRITIS
  4. CELEBREX [Concomitant]
     Indication: ARTHRITIS
  5. FENTANYL [Concomitant]
     Indication: PAIN
     Route: 061
  6. ATENOLOL [Concomitant]
     Indication: HYPERTENSION
     Route: 048
  7. OXYBUTYNIN [Concomitant]
     Indication: URINARY INCONTINENCE
     Dosage: UNSURE OF STRENGTH
     Route: 048
  8. OXYBUTYNIN [Concomitant]
     Indication: URGE INCONTINENCE
  9. DETROL [Concomitant]
     Indication: DRUG USE FOR UNKNOWN INDICATION
  10. UNKNOWN MEDICATIONS [Concomitant]
     Indication: DRUG USE FOR UNKNOWN INDICATION

REACTIONS (7)
  - DRUG INEFFECTIVE [None]
  - DRY SKIN [None]
  - ERYTHEMA [None]
  - INJECTION SITE HAEMORRHAGE [None]
  - INJECTION SITE PAIN [None]
  - PRURITUS [None]
  - SKIN EXFOLIATION [None]
